FAERS Safety Report 6032192-5 (Version None)
Quarter: 2008Q4

REPORT INFORMATION
  Report Type: 
  Country: None (occurrence: None)
  Receive Date: 20081224
  Receipt Date: 20081215
  Transmission Date: 20090506
  Serious: Yes (Life-Threatening, Hospitalization)
  Sender: FDA-Public Use
  Company Number: GAM-226-08-FR

PATIENT
  Age: 72 Year
  Sex: Female

DRUGS (1)
  1. OCTAGAM [Suspect]
     Indication: GUILLAIN-BARRE SYNDROME
     Dosage: 400 MG/KG, IV
     Route: 042
     Dates: start: 20081123, end: 20081126

REACTIONS (6)
  - COMA [None]
  - CONVULSION [None]
  - FALL [None]
  - HYPONATRAEMIA [None]
  - REVERSIBLE POSTERIOR LEUKOENCEPHALOPATHY SYNDROME [None]
  - UNRESPONSIVE TO STIMULI [None]
